FAERS Safety Report 5059056-8 (Version None)
Quarter: 2006Q3

REPORT INFORMATION
  Report Type: 
  Country: None (occurrence: None)
  Receive Date: 20060719
  Receipt Date: 20060712
  Transmission Date: 20061208
  Serious: Yes (Death, Life-Threatening, Other)
  Sender: FDA-Public Use
  Company Number: 200612407BWH

PATIENT
  Age: 74 Year
  Sex: Female
  Weight: 51.8 kg

DRUGS (37)
  1. TRASYLOL [Suspect]
     Indication: AORTIC VALVE REPLACEMENT
     Dosage: 1 ML ONCE INTRAVENOUS
     Route: 042
     Dates: start: 20040804
  2. PREOPERATIVE ANAESTHESIA (ANAESTHETICS) [Suspect]
  3. SYNTHROID [Concomitant]
  4. LESCOL [Concomitant]
  5. DARVOCET [Concomitant]
  6. IRON SULFATETHIAMIN COMPOUND TAB [Concomitant]
  7. CALCIUM GLUCONATE [Concomitant]
  8. DIGOXIN [Concomitant]
  9. WARFARIN SODIUM [Concomitant]
  10. FOSAMAX [Concomitant]
  11. ASCORBIC ACID [Concomitant]
  12. HEPARIN [Concomitant]
  13. NEO SYNEPHRIN [Concomitant]
  14. ALBUMIN [Concomitant]
  15. NORMOSOL [Concomitant]
  16. MANNITOL [Concomitant]
  17. LASIX [Concomitant]
  18. PROTAMINE SULFATE [Concomitant]
  19. SONATA [Concomitant]
  20. ZITHROMAX [Concomitant]
  21. AMIODARONE HCL [Concomitant]
  22. VITAMINS [Concomitant]
  23. POTASSIUM CHLORIDE [Concomitant]
  24. VERSED [Concomitant]
  25. CEFAZOLIN [Concomitant]
  26. LACTATED RINGER'S [Concomitant]
  27. NORMAL SALINE [Concomitant]
  28. DOPAMINE [Concomitant]
  29. EPINEPHRINE [Concomitant]
  30. ZANTAC [Concomitant]
  31. SOLU-CORTEF [Concomitant]
  32. NACL              (SODIUM CHLORIDE) [Concomitant]
  33. KANAMYCIN SULFATE [Concomitant]
  34. BENADRYL [Concomitant]
  35. INSULIN [Concomitant]
  36. MAGNESIUM SULFATE [Concomitant]
  37. PROTAMINE SULFATE [Suspect]

REACTIONS (11)
  - ANAPHYLACTIC REACTION [None]
  - ATELECTASIS [None]
  - CARDIAC ARREST [None]
  - HYPOTENSION [None]
  - METABOLIC ACIDOSIS [None]
  - OEDEMA [None]
  - ORGAN FAILURE [None]
  - POST PROCEDURAL COMPLICATION [None]
  - RESPIRATORY FAILURE [None]
  - VENTRICULAR FIBRILLATION [None]
  - VENTRICULAR HYPOKINESIA [None]
